FAERS Safety Report 8245401-9 (Version None)
Quarter: 2012Q1

REPORT INFORMATION
  Report Type: 
  Country: None (occurrence: None)
  Receive Date: 20120329
  Receipt Date: 20120320
  Transmission Date: 20120608
  Serious: Yes (Other)
  Sender: FDA-Public Use
  Company Number: US-ASTRAZENECA-2011SE70645

PATIENT
  Age: 82 Year
  Sex: Female

DRUGS (3)
  1. TOPROL-XL [Suspect]
     Route: 048
  2. SYMBICORT [Suspect]
     Dosage: 80/4.5, UNKNOWN
     Route: 055
  3. SYMBICORT [Suspect]
     Dosage: 160/4.5, UNKNOWN
     Route: 055

REACTIONS (3)
  - THROMBOSIS [None]
  - DRUG DISPENSING ERROR [None]
  - VESSEL PUNCTURE SITE HAEMATOMA [None]
